FAERS Safety Report 6119032-0 (Version None)
Quarter: 2009Q1

REPORT INFORMATION
  Report Type: 
  Country: None (occurrence: None)
  Receive Date: 20090316
  Receipt Date: 20090310
  Transmission Date: 20090719
  Serious: Yes (Hospitalization)
  Sender: FDA-Public Use
  Company Number: DE-BAYER-200915998GPV

PATIENT
  Age: 64 Year
  Sex: Female

DRUGS (9)
  1. ALEMTUZUMAB [Suspect]
     Indication: T-CELL LYMPHOMA
     Route: 058
     Dates: start: 20081202, end: 20090117
  2. PREDNISONE [Suspect]
     Indication: T-CELL LYMPHOMA
     Route: 048
     Dates: start: 20081125, end: 20090116
  3. PREDNISONE [Suspect]
     Route: 048
     Dates: start: 20090116, end: 20090120
  4. CYCLOPHOSPHAMIDE [Suspect]
     Indication: T-CELL LYMPHOMA
     Route: 042
     Dates: start: 20081202, end: 20090116
  5. DOXORUBICIN HCL [Suspect]
     Indication: T-CELL LYMPHOMA
     Route: 042
     Dates: start: 20081202, end: 20090116
  6. VINCRISTINE [Suspect]
     Indication: T-CELL LYMPHOMA
     Route: 042
     Dates: start: 20081202, end: 20090116
  7. PEGFILGRASTIM [Suspect]
     Indication: T-CELL LYMPHOMA
     Route: 058
     Dates: start: 20081205, end: 20090106
  8. LENOGRASTIM [Suspect]
     Indication: T-CELL LYMPHOMA
     Route: 058
     Dates: start: 20090118, end: 20090127
  9. TRIMETHOPRIM/SULFAMETHOXAZOL [Concomitant]
     Indication: ANTIFUNGAL PROPHYLAXIS
     Route: 065
     Dates: start: 20081202

REACTIONS (3)
  - FEBRILE NEUTROPENIA [None]
  - HAEMATOCHEZIA [None]
  - HAEMATURIA [None]
